FAERS Safety Report 5069780-9 (Version None)
Quarter: 2006Q3

REPORT INFORMATION
  Report Type: 
  Country: None (occurrence: None)
  Receive Date: 20060803
  Receipt Date: 20060629
  Transmission Date: 20061208
  Serious: Yes (Other)
  Sender: FDA-Public Use
  Company Number: J200602060

PATIENT
  Age: 57 Year
  Sex: Female

DRUGS (3)
  1. SAWACILLIN [Suspect]
     Dosage: 250MG THREE TIMES PER DAY
     Route: 048
     Dates: start: 20060415, end: 20060417
  2. FLUNASE (FLUTICASONE PROPIONATE) [Suspect]
     Dosage: 100MG TWICE PER DAY
     Dates: start: 20060415, end: 20060417
  3. ISODINE [Suspect]
     Route: 065
     Dates: start: 20060415, end: 20060417

REACTIONS (3)
  - ERYTHEMA [None]
  - GENERALISED ERYTHEMA [None]
  - RASH [None]
